FAERS Safety Report 16347830 (Version 1)
Quarter: 2019Q2

REPORT INFORMATION
  Report Type: Spontaneous
  Country: US (occurrence: US)
  Receive Date: 20190417
  Receipt Date: 20190417
  Transmission Date: 20190711
  Serious: Yes (Hospitalization)
  Sender: FDA-Public Use
  Company Number: None

PATIENT
  Age: 63 Year
  Sex: Male

DRUGS (1)
  1. TAMSULOSIN [Suspect]
     Active Substance: TAMSULOSIN
     Indication: BENIGN PROSTATIC HYPERPLASIA
     Dosage: ?          OTHER DOSE:0.4MG;?
     Route: 048
     Dates: start: 20180621, end: 20190320

REACTIONS (4)
  - Syncope [None]
  - Cardiac disorder [None]
  - Drug interaction [None]
  - Seizure [None]

NARRATIVE: CASE EVENT DATE: 20190320
